FAERS Safety Report 6619173-5 (Version None)
Quarter: 2010Q1

REPORT INFORMATION
  Report Type: 
  Country: None (occurrence: None)
  Receive Date: 20100304
  Receipt Date: 20100304
  Transmission Date: 20100710
  Serious: No
  Sender: FDA-Public Use
  Company Number: None

PATIENT
  Age: 56 Year
  Sex: Female
  Weight: 68.9467 kg

DRUGS (1)
  1. ZICAM NASAL GEL [Suspect]

REACTIONS (2)
  - HYPOSMIA [None]
  - PAROSMIA [None]
